FAERS Safety Report 11026560 (Version 1)
Quarter: 2015Q2

REPORT INFORMATION
  Report Type: Spontaneous
  Country: GB (occurrence: GB)
  Receive Date: 20150414
  Receipt Date: 20150414
  Transmission Date: 20150821
  Serious: Yes (Life-Threatening, Other)
  Sender: FDA-Public Use
  Company Number: GB-PFIZER INC-2015127063

PATIENT
  Age: 3 Decade
  Sex: Male
  Weight: 88.9 kg

DRUGS (1)
  1. PREGABALIN. [Suspect]
     Active Substance: PREGABALIN
     Indication: GENERALISED ANXIETY DISORDER
     Dosage: TAPERING OFF AT 75MG PER WEEK.
     Route: 048
     Dates: start: 20130701, end: 20150401

REACTIONS (6)
  - Drug ineffective [Unknown]
  - Seizure [Unknown]
  - Face injury [Unknown]
  - Suicidal ideation [Not Recovered/Not Resolved]
  - Rib fracture [Unknown]
  - Withdrawal syndrome [Not Recovered/Not Resolved]

NARRATIVE: CASE EVENT DATE: 20130701
